FAERS Safety Report 21223148 (Version 3)
Quarter: 2022Q3

REPORT INFORMATION
  Report Type: Report from Study
  Country: DK (occurrence: None)
  Receive Date: 20220817
  Receipt Date: 20220920
  Transmission Date: 20221027
  Serious: Yes (Hospitalization)
  Sender: FDA-Public Use
  Company Number: DK-Eisai Medical Research-EC-2022-121386

PATIENT
  Age: 64 Year
  Sex: Male
  Weight: 85 kg

DRUGS (16)
  1. LENVATINIB [Suspect]
     Active Substance: LENVATINIB
     Indication: Clear cell renal cell carcinoma
     Route: 048
     Dates: start: 20220629, end: 20220809
  2. QUAVONLIMAB [Suspect]
     Active Substance: QUAVONLIMAB
     Indication: Clear cell renal cell carcinoma
     Dosage: QUAVONLIMAB 25MG (+) PEMBROLIZUMAB 400MG
     Route: 041
     Dates: start: 20220629, end: 20220629
  3. ASPIRIN [Concomitant]
     Active Substance: ASPIRIN
     Dates: start: 20130205, end: 20220812
  4. SIMVASTATIN [Concomitant]
     Active Substance: SIMVASTATIN
     Dates: start: 20150713, end: 20220812
  5. LIRAGLUTIDE [Concomitant]
     Active Substance: LIRAGLUTIDE
     Route: 058
     Dates: start: 20170526
  6. METOPROLOL [Concomitant]
     Active Substance: METOPROLOL
     Dates: start: 20170609
  7. METFORMIN HYDROCHLORIDE\SITAGLIPTIN PHOSPHATE [Concomitant]
     Active Substance: METFORMIN HYDROCHLORIDE\SITAGLIPTIN PHOSPHATE
     Dates: start: 20170803, end: 20220907
  8. XAMIOL [BETAMETHASONE DIPROPIONATE;CALCIPOTRIOL] [Concomitant]
     Dates: start: 20180119
  9. HYDROCORTISONE\MICONAZOLE NITRATE [Concomitant]
     Active Substance: HYDROCORTISONE\MICONAZOLE NITRATE
     Dates: start: 20180607
  10. DAPAGLIFLOZIN [Concomitant]
     Active Substance: DAPAGLIFLOZIN
     Dates: start: 20180607
  11. ZOPICLONE [Concomitant]
     Active Substance: ZOPICLONE
     Dates: start: 20181113, end: 20220812
  12. SILDENAFIL CITRATE [Concomitant]
     Active Substance: SILDENAFIL CITRATE
     Dates: start: 20001012, end: 20220812
  13. DOMPERIDONE [Concomitant]
     Active Substance: DOMPERIDONE
     Dates: start: 20220629
  14. AMLODIPINE [Concomitant]
     Active Substance: AMLODIPINE BESYLATE
     Dates: start: 20220713
  15. METOPROLOL SUCCINATE [Concomitant]
     Active Substance: METOPROLOL SUCCINATE
     Dates: start: 20220713
  16. PEMBROLIZUMAB [Suspect]
     Active Substance: PEMBROLIZUMAB

REACTIONS (1)
  - Urinary tract infection [Not Recovered/Not Resolved]

NARRATIVE: CASE EVENT DATE: 20220810
